FAERS Safety Report 25691721 (Version 1)
Quarter: 2025Q3

REPORT INFORMATION
  Report Type: Spontaneous
  Country: EU (occurrence: EU)
  Receive Date: 20250818
  Receipt Date: 20250818
  Transmission Date: 20251020
  Serious: Yes (Congenital Anomaly)
  Sender: MYLAN
  Company Number: EU-EMB-M202407124-1

PATIENT
  Sex: Female
  Weight: 3.34 kg

DRUGS (32)
  1. AMLODIPINE [Suspect]
     Active Substance: AMLODIPINE BESYLATE
     Indication: Product used for unknown indication
     Dosage: 5 MILLIGRAM, BID ( 0.5 DAY, CONFLICTING REPORTS. )
     Dates: start: 202303, end: 202312
  2. AMLODIPINE [Suspect]
     Active Substance: AMLODIPINE BESYLATE
     Dosage: 5 MILLIGRAM, BID ( 0.5 DAY, CONFLICTING REPORTS. )
     Dates: start: 202303, end: 202312
  3. AMLODIPINE [Suspect]
     Active Substance: AMLODIPINE BESYLATE
     Dosage: 5 MILLIGRAM, BID ( 0.5 DAY, CONFLICTING REPORTS. )
     Route: 064
     Dates: start: 202303, end: 202312
  4. AMLODIPINE [Suspect]
     Active Substance: AMLODIPINE BESYLATE
     Dosage: 5 MILLIGRAM, BID ( 0.5 DAY, CONFLICTING REPORTS. )
     Route: 064
     Dates: start: 202303, end: 202312
  5. AMLODIPINE [Suspect]
     Active Substance: AMLODIPINE BESYLATE
     Dosage: 5 MILLIGRAM, BID ( 0.5 DAY, CONFLICTING REPORTS. )
     Dates: start: 202303, end: 202312
  6. AMLODIPINE [Suspect]
     Active Substance: AMLODIPINE BESYLATE
     Dosage: 5 MILLIGRAM, BID ( 0.5 DAY, CONFLICTING REPORTS. )
     Dates: start: 202303, end: 202312
  7. AMLODIPINE [Suspect]
     Active Substance: AMLODIPINE BESYLATE
     Dosage: 5 MILLIGRAM, BID ( 0.5 DAY, CONFLICTING REPORTS. )
     Route: 064
     Dates: start: 202303, end: 202312
  8. AMLODIPINE [Suspect]
     Active Substance: AMLODIPINE BESYLATE
     Dosage: 5 MILLIGRAM, BID ( 0.5 DAY, CONFLICTING REPORTS. )
     Route: 064
     Dates: start: 202303, end: 202312
  9. TOPIRAMATE [Suspect]
     Active Substance: TOPIRAMATE
     Indication: Product used for unknown indication
     Dosage: 50 MILLIGRAM, BID (0.5 DAY, INITIALLY 100 MG/D, WITH KNOWLEDGE OF PREGNANCY (GW 4) REDUCED)
     Dates: start: 202303, end: 202305
  10. TOPIRAMATE [Suspect]
     Active Substance: TOPIRAMATE
     Dosage: 50 MILLIGRAM, BID (0.5 DAY, INITIALLY 100 MG/D, WITH KNOWLEDGE OF PREGNANCY (GW 4) REDUCED)
     Dates: start: 202303, end: 202305
  11. TOPIRAMATE [Suspect]
     Active Substance: TOPIRAMATE
     Dosage: 50 MILLIGRAM, BID (0.5 DAY, INITIALLY 100 MG/D, WITH KNOWLEDGE OF PREGNANCY (GW 4) REDUCED)
     Route: 064
     Dates: start: 202303, end: 202305
  12. TOPIRAMATE [Suspect]
     Active Substance: TOPIRAMATE
     Dosage: 50 MILLIGRAM, BID (0.5 DAY, INITIALLY 100 MG/D, WITH KNOWLEDGE OF PREGNANCY (GW 4) REDUCED)
     Route: 064
     Dates: start: 202303, end: 202305
  13. TOPIRAMATE [Suspect]
     Active Substance: TOPIRAMATE
     Dosage: 50 MILLIGRAM, BID (0.5 DAY, INITIALLY 100 MG/D, WITH KNOWLEDGE OF PREGNANCY (GW 4) REDUCED)
     Dates: start: 202303, end: 202305
  14. TOPIRAMATE [Suspect]
     Active Substance: TOPIRAMATE
     Dosage: 50 MILLIGRAM, BID (0.5 DAY, INITIALLY 100 MG/D, WITH KNOWLEDGE OF PREGNANCY (GW 4) REDUCED)
     Dates: start: 202303, end: 202305
  15. TOPIRAMATE [Suspect]
     Active Substance: TOPIRAMATE
     Dosage: 50 MILLIGRAM, BID (0.5 DAY, INITIALLY 100 MG/D, WITH KNOWLEDGE OF PREGNANCY (GW 4) REDUCED)
     Route: 064
     Dates: start: 202303, end: 202305
  16. TOPIRAMATE [Suspect]
     Active Substance: TOPIRAMATE
     Dosage: 50 MILLIGRAM, BID (0.5 DAY, INITIALLY 100 MG/D, WITH KNOWLEDGE OF PREGNANCY (GW 4) REDUCED)
     Route: 064
     Dates: start: 202303, end: 202305
  17. METOPROLOL [Suspect]
     Active Substance: METOPROLOL
     Indication: Product used for unknown indication
     Dosage: 47.5 MILLIGRAM, QD
     Dates: start: 202303, end: 202312
  18. METOPROLOL [Suspect]
     Active Substance: METOPROLOL
     Dosage: 47.5 MILLIGRAM, QD
     Dates: start: 202303, end: 202312
  19. METOPROLOL [Suspect]
     Active Substance: METOPROLOL
     Dosage: 47.5 MILLIGRAM, QD
     Route: 064
     Dates: start: 202303, end: 202312
  20. METOPROLOL [Suspect]
     Active Substance: METOPROLOL
     Dosage: 47.5 MILLIGRAM, QD
     Route: 064
     Dates: start: 202303, end: 202312
  21. METOPROLOL [Suspect]
     Active Substance: METOPROLOL
     Dosage: 47.5 MILLIGRAM, QD
     Dates: start: 202303, end: 202312
  22. METOPROLOL [Suspect]
     Active Substance: METOPROLOL
     Dosage: 47.5 MILLIGRAM, QD
     Dates: start: 202303, end: 202312
  23. METOPROLOL [Suspect]
     Active Substance: METOPROLOL
     Dosage: 47.5 MILLIGRAM, QD
     Route: 064
     Dates: start: 202303, end: 202312
  24. METOPROLOL [Suspect]
     Active Substance: METOPROLOL
     Dosage: 47.5 MILLIGRAM, QD
     Route: 064
     Dates: start: 202303, end: 202312
  25. ASPIRIN [Suspect]
     Active Substance: ASPIRIN
     Indication: Product used for unknown indication
     Dosage: 100 MILLIGRAM, QD
     Dates: start: 202303, end: 202312
  26. ASPIRIN [Suspect]
     Active Substance: ASPIRIN
     Dosage: 100 MILLIGRAM, QD
     Dates: start: 202303, end: 202312
  27. ASPIRIN [Suspect]
     Active Substance: ASPIRIN
     Dosage: 100 MILLIGRAM, QD
     Route: 064
     Dates: start: 202303, end: 202312
  28. ASPIRIN [Suspect]
     Active Substance: ASPIRIN
     Dosage: 100 MILLIGRAM, QD
     Route: 064
     Dates: start: 202303, end: 202312
  29. ASPIRIN [Suspect]
     Active Substance: ASPIRIN
     Dosage: 100 MILLIGRAM, QD
     Dates: start: 202303, end: 202312
  30. ASPIRIN [Suspect]
     Active Substance: ASPIRIN
     Dosage: 100 MILLIGRAM, QD
     Dates: start: 202303, end: 202312
  31. ASPIRIN [Suspect]
     Active Substance: ASPIRIN
     Dosage: 100 MILLIGRAM, QD
     Route: 064
     Dates: start: 202303, end: 202312
  32. ASPIRIN [Suspect]
     Active Substance: ASPIRIN
     Dosage: 100 MILLIGRAM, QD
     Route: 064
     Dates: start: 202303, end: 202312

REACTIONS (5)
  - Congenital megaureter [Not Recovered/Not Resolved]
  - Congenital ureterocele [Not Recovered/Not Resolved]
  - Congenital hydronephrosis [Not Recovered/Not Resolved]
  - Kidney duplex [Not Recovered/Not Resolved]
  - Foetal exposure during pregnancy [Unknown]

NARRATIVE: CASE EVENT DATE: 20231201
